FAERS Safety Report 9792679 (Version 1)
Quarter: 2014Q1

REPORT INFORMATION
  Report Type: Spontaneous
  Country: US (occurrence: US)
  Receive Date: 20140102
  Receipt Date: 20140102
  Transmission Date: 20141002
  Serious: No
  Sender: FDA-Public Use
  Company Number: US-SA-2013SA103912

PATIENT
  Age: 49 Year
  Sex: Male

DRUGS (4)
  1. AUBAGIO [Suspect]
     Route: 048
  2. GABAPENTIN [Concomitant]
  3. CYCLOBENZAPRINE [Concomitant]
  4. ANALGESICS [Concomitant]

REACTIONS (3)
  - Rash pruritic [Unknown]
  - Pain [Unknown]
  - Sleep disorder [Unknown]
